FAERS Safety Report 7138034-9 (Version None)
Quarter: 2010Q4

REPORT INFORMATION
  Report Type: 
  Country: None (occurrence: None)
  Receive Date: 20101206
  Receipt Date: 20101129
  Transmission Date: 20110411
  Serious: Yes (Hospitalization, Other)
  Sender: FDA-Public Use
  Company Number: US-ABBOTT-10P-163-0686844-00

PATIENT
  Sex: Female

DRUGS (3)
  1. HUMIRA [Suspect]
     Indication: CROHN'S DISEASE
     Dates: start: 20100101
  2. BYSTOLIC [Suspect]
     Indication: HYPERTENSION
     Dates: end: 20100901
  3. SOLU-MEDROL [Concomitant]
     Indication: GASTROINTESTINAL SURGERY
     Route: 042
     Dates: start: 20101110, end: 20101117

REACTIONS (8)
  - ABDOMINAL ADHESIONS [None]
  - ARRHYTHMIA [None]
  - BRADYCARDIA [None]
  - CARDIAC FAILURE CONGESTIVE [None]
  - DRUG INEFFECTIVE [None]
  - FATIGUE [None]
  - INTESTINAL OBSTRUCTION [None]
  - SUPRAVENTRICULAR TACHYCARDIA [None]
